FAERS Safety Report 14470443 (Version 1)
Quarter: 2018Q1

REPORT INFORMATION
  Report Type: Spontaneous
  Country: US (occurrence: US)
  Receive Date: 20180131
  Receipt Date: 20180131
  Transmission Date: 20180509
  Serious: Yes (Other)
  Sender: FDA-Public Use
  Company Number: US-SA-2018SA020349

PATIENT
  Sex: Female

DRUGS (4)
  1. ALL OTHER THERAPEUTIC PRODUCTS [Suspect]
     Active Substance: UNSPECIFIED INGREDIENT
     Route: 065
  2. PLAVIX [Suspect]
     Active Substance: CLOPIDOGREL BISULFATE
     Route: 048
  3. PACERONE [Suspect]
     Active Substance: AMIODARONE HYDROCHLORIDE
     Route: 065
  4. ASPIRIN. [Suspect]
     Active Substance: ASPIRIN
     Route: 065

REACTIONS (22)
  - Abdominal distension [Unknown]
  - Headache [Unknown]
  - Chest pain [Unknown]
  - Fungal infection [Unknown]
  - Coordination abnormal [Unknown]
  - Drug hypersensitivity [Unknown]
  - Nausea [Unknown]
  - Cough [Unknown]
  - Splenomegaly [Unknown]
  - Depression [Unknown]
  - Fatigue [Unknown]
  - Gait disturbance [Unknown]
  - Photosensitivity reaction [Unknown]
  - Decreased appetite [Unknown]
  - Alopecia [Unknown]
  - Escherichia infection [Unknown]
  - Vomiting [Unknown]
  - Nerve injury [Unknown]
  - Vision blurred [Unknown]
  - Fall [Unknown]
  - Bladder disorder [Unknown]
  - Gastrointestinal disorder [Unknown]
